FAERS Safety Report 7826124-4 (Version None)
Quarter: 2011Q4

REPORT INFORMATION
  Report Type: 
  Country: None (occurrence: None)
  Receive Date: 20111019
  Receipt Date: 20111013
  Transmission Date: 20120403
  Serious: Yes (Death)
  Sender: FDA-Public Use
  Company Number: US-CELGENEUS-163-21880-11101540

PATIENT
  Sex: Male

DRUGS (6)
  1. DILAUDID [Concomitant]
     Route: 065
  2. PRILOSEC [Concomitant]
     Route: 065
  3. ATENOLOL [Concomitant]
     Route: 065
  4. MAGNESIUM HYDROXIDE TAB [Concomitant]
     Route: 065
  5. REVLIMID [Suspect]
     Indication: MULTIPLE MYELOMA
     Dosage: 10 MILLIGRAM
     Route: 048
     Dates: start: 20100606
  6. FRAGMIN [Concomitant]
     Route: 065

REACTIONS (1)
  - DEATH [None]
